FAERS Safety Report 7825718-X (Version None)
Quarter: 2011Q4

REPORT INFORMATION
  Report Type: 
  Country: None (occurrence: None)
  Receive Date: 20111019
  Receipt Date: 20111017
  Transmission Date: 20120403
  Serious: No
  Sender: FDA-Public Use
  Company Number: US-B.I. PHARMACEUTICALS,INC./RIDGEFIELD-2011-BP-21049BP

PATIENT

DRUGS (18)
  1. ALLOPURINOL [Concomitant]
  2. AMLODIPINE [Concomitant]
  3. IPRATROPIUM BROMIDE [Concomitant]
  4. SPIRIVA [Concomitant]
  5. ETHAMBUTOL HYDROCHLORIDE [Concomitant]
  6. SINGULAIR [Concomitant]
  7. PRADAXA [Suspect]
  8. ALBUTEROL [Concomitant]
  9. AZITHROMYCIN [Concomitant]
  10. BUDESONIDE [Concomitant]
  11. ECONAZOLE [Concomitant]
  12. NASONEX [Concomitant]
  13. NEXIUM [Concomitant]
  14. METFORMIN HCL [Concomitant]
  15. ZOLOFT [Concomitant]
  16. TRAZODONE HYDROCHLORIDE [Concomitant]
  17. REGLAN [Concomitant]
  18. DIOVAN [Concomitant]

REACTIONS (2)
  - COMPLEMENT FACTOR ABNORMAL [None]
  - BRONCHIECTASIS [None]
